FAERS Safety Report 9944742 (Version 1)
Quarter: 2014Q1

REPORT INFORMATION
  Report Type: Report from Study
  Country: US (occurrence: US)
  Receive Date: 20140303
  Receipt Date: 20140303
  Transmission Date: 20141002
  Serious: No
  Sender: FDA-Public Use
  Company Number: US-ABBVIE-13P-163-1052908-00

PATIENT
  Age: 18 Year
  Sex: Female

DRUGS (8)
  1. HUMIRA [Suspect]
     Indication: RHEUMATOID ARTHRITIS
     Dates: start: 20130203
  2. NAPROSYN [Concomitant]
     Indication: RHEUMATOID ARTHRITIS
     Route: 048
  3. METHOTREXTATE [Concomitant]
     Indication: RHEUMATOID ARTHRITIS
     Dosage: 3 TABS WEEKLY
     Route: 048
  4. SINGULAIR [Concomitant]
     Indication: ASTHMA
     Dosage: DAILY
     Route: 048
  5. XYZAL [Concomitant]
     Indication: HYPERSENSITIVITY
     Dosage: DAILY
     Route: 048
  6. ALLEGRA D [Concomitant]
     Indication: HYPERSENSITIVITY
     Dosage: DAILY
     Route: 048
  7. DYMISTA [Concomitant]
     Indication: HYPERSENSITIVITY
     Dosage: 1 SPRAY PER NOSTRIL DAILY
  8. ADVAIR [Concomitant]
     Indication: ASTHMA
     Dosage: 100/50 DAILY

REACTIONS (1)
  - Injection site pain [Not Recovered/Not Resolved]
